FAERS Safety Report 6018543-6 (Version None)
Quarter: 2008Q4

REPORT INFORMATION
  Report Type: 
  Country: None (occurrence: None)
  Receive Date: 20081223
  Receipt Date: 20081204
  Transmission Date: 20090506
  Serious: No
  Sender: FDA-Public Use
  Company Number: US-B.I. PHARMACEUTICALS,INC./RIDGEFIELD-2008-BP-18273BP

PATIENT
  Age: 41 Year
  Sex: Female

DRUGS (2)
  1. VIRAMUNE [Suspect]
     Indication: HIV INFECTION
     Dates: start: 20060901
  2. TRUVADA [Suspect]
     Indication: HIV INFECTION
     Dates: start: 20060901

REACTIONS (3)
  - CD4 LYMPHOCYTES DECREASED [None]
  - DRUG RESISTANCE [None]
  - LYMPHADENOPATHY [None]
